FAERS Safety Report 4283904-2 (Version None)
Quarter: 2004Q1

REPORT INFORMATION
  Report Type: 
  Country: None (occurrence: None)
  Receive Date: 20040130
  Receipt Date: 20040115
  Transmission Date: 20041129
  Serious: Yes (Death, Hospitalization)
  Sender: FDA-Public Use
  Company Number: WAES 0401USA01268

PATIENT
  Age: 78 Year
  Sex: Female

DRUGS (4)
  1. ZOCOR [Suspect]
     Indication: HYPERLIPIDAEMIA
     Dosage: 5 MG/DAILY PO
     Route: 048
     Dates: start: 20020812, end: 20020225
  2. ALOSENN [Concomitant]
  3. AMLODIPINE BESYLATE [Concomitant]
  4. TRIAZOLAM [Concomitant]

REACTIONS (2)
  - GENERAL PHYSICAL HEALTH DETERIORATION [None]
  - TONGUE NEOPLASM MALIGNANT STAGE UNSPECIFIED [None]
